FAERS Safety Report 8045901-0 (Version None)
Quarter: 2012Q1

REPORT INFORMATION
  Report Type: 
  Country: None (occurrence: None)
  Receive Date: 20120113
  Receipt Date: 20120109
  Transmission Date: 20120608
  Serious: Yes (Hospitalization)
  Sender: FDA-Public Use
  Company Number: US-GLAXOSMITHKLINE-A0961013A

PATIENT
  Age: 56 Year
  Sex: Male
  Weight: 114.5 kg

DRUGS (18)
  1. NEUPOGEN [Suspect]
     Indication: MULTIPLE MYELOMA
     Dates: start: 20111204, end: 20111213
  2. MAGNESIUM [Concomitant]
  3. ACYCLOVIR [Suspect]
     Indication: PROPHYLAXIS
     Dosage: 400MG THREE TIMES PER DAY
     Route: 048
     Dates: start: 20111217
  4. ZOFRAN [Concomitant]
  5. NEUPOGEN [Concomitant]
  6. CALCIUM CARBONATE [Concomitant]
  7. OXYCODONE HCL [Concomitant]
  8. ATIVAN [Concomitant]
  9. COMPAZINE [Concomitant]
  10. MESNA [Concomitant]
  11. METFORMIN HCL [Concomitant]
  12. BENADRYL [Concomitant]
  13. CALCIUM GLUCONATE [Concomitant]
  14. ELTROMBOPAG [Suspect]
     Indication: MULTIPLE MYELOMA
     Dosage: 50MG PER DAY
     Route: 048
     Dates: start: 20111204, end: 20111213
  15. FOLIC ACID [Concomitant]
  16. MULTI-VITAMIN [Concomitant]
  17. VALACYCLOVIR [Concomitant]
  18. ACCUPRIL [Concomitant]

REACTIONS (1)
  - DELAYED ENGRAFTMENT [None]
